FAERS Safety Report 18671539 (Version 2)
Quarter: 2021Q1

REPORT INFORMATION
  Report Type: Report from Study
  Country: US (occurrence: US)
  Receive Date: 20201228
  Receipt Date: 20210115
  Transmission Date: 20210419
  Serious: Yes (Hospitalization, Other)
  Sender: FDA-Public Use
  Company Number: US-BRISTOL-MYERS SQUIBB COMPANY-BMS-2020-109654

PATIENT
  Age: 57 Year
  Sex: Male
  Weight: 59.41 kg

DRUGS (1)
  1. NIVOLUMAB [Suspect]
     Active Substance: NIVOLUMAB
     Indication: HEAD AND NECK CANCER
     Dosage: 480 MILLIGRAM, Q4WK
     Route: 042
     Dates: start: 20200828

REACTIONS (2)
  - Vascular device infection [Unknown]
  - Enterobacter sepsis [Unknown]

NARRATIVE: CASE EVENT DATE: 20201218
